FAERS Safety Report 5441952-0 (Version None)
Quarter: 2007Q3

REPORT INFORMATION
  Report Type: 
  Country: None (occurrence: None)
  Receive Date: 20070904
  Receipt Date: 20070830
  Transmission Date: 20080115
  Serious: Yes (Other)
  Sender: FDA-Public Use
  Company Number: A0677853A

PATIENT
  Age: 60 Year
  Sex: Male
  Weight: 98 kg

DRUGS (6)
  1. AVODART [Suspect]
     Indication: BENIGN PROSTATIC HYPERPLASIA
     Dosage: .5MG PER DAY
     Route: 048
     Dates: start: 20050201
  2. LOSARTAN WITH HYDROCHLOROTHIAZIDE [Concomitant]
     Dates: start: 20020101
  3. ALLOPURINOL [Concomitant]
     Dates: start: 20020101
  4. AMLODIPINE BESYLATE [Concomitant]
     Dates: start: 20020101
  5. UNSPECIFIED MEDICATION [Concomitant]
     Dates: start: 20020101
  6. SIMVASTATIN [Concomitant]
     Dates: start: 20020101

REACTIONS (2)
  - DIABETES MELLITUS [None]
  - THROMBOCYTOPENIA [None]
